FAERS Safety Report 4506704-4 (Version None)
Quarter: 2004Q4

REPORT INFORMATION
  Report Type: 
  Country: None (occurrence: None)
  Receive Date: 20041122
  Receipt Date: 20041110
  Transmission Date: 20050328
  Serious: Yes (Hospitalization)
  Sender: FDA-Public Use
  Company Number: US-MERCK-0411USA02037

PATIENT
  Age: 80 Year
  Sex: Male

DRUGS (11)
  1. VIOXX [Suspect]
     Indication: ARTHRITIS
     Route: 048
  2. DETROL LA [Concomitant]
     Route: 065
  3. ASPIRIN [Concomitant]
     Route: 065
  4. TOPROL-XL [Concomitant]
     Route: 065
  5. APRESOLINE [Concomitant]
     Route: 065
  6. AMBIEN [Concomitant]
     Route: 065
  7. ISOSORBIDE [Concomitant]
     Route: 065
  8. ZOCOR [Concomitant]
     Route: 065
  9. FLOMAX [Concomitant]
     Route: 065
  10. METHOCARBAMOL [Concomitant]
     Route: 065
  11. CELEXA [Concomitant]
     Route: 065

REACTIONS (1)
  - ANGINA PECTORIS [None]
